FAERS Safety Report 9884559 (Version 1)
Quarter: 2014Q1

REPORT INFORMATION
  Report Type: Spontaneous
  Country: US (occurrence: None)
  Receive Date: 20140207
  Receipt Date: 20140207
  Transmission Date: 20141002
  Serious: Yes (Other)
  Sender: FDA-Public Use
  Company Number: None

PATIENT
  Age: 53 Year
  Sex: Male
  Weight: 119.3 kg

DRUGS (1)
  1. THINOGENICS [Suspect]
     Indication: WEIGHT CONTROL
     Dates: start: 20130903, end: 20131217

REACTIONS (5)
  - Anxiety [None]
  - Dry mouth [None]
  - Lethargy [None]
  - General physical health deterioration [None]
  - Heart rate increased [None]
